FAERS Safety Report 13384416 (Version 1)
Quarter: 2017Q1

REPORT INFORMATION
  Report Type: Spontaneous
  Country: US (occurrence: US)
  Receive Date: 20170329
  Receipt Date: 20170329
  Transmission Date: 20170429
  Serious: No
  Sender: FDA-Public Use
  Company Number: None

PATIENT
  Age: 53 Year
  Sex: Female

DRUGS (1)
  1. STELARA [Suspect]
     Active Substance: USTEKINUMAB

REACTIONS (5)
  - Pruritus [None]
  - Oedema peripheral [None]
  - Feeling hot [None]
  - Erythema [None]
  - Headache [None]

NARRATIVE: CASE EVENT DATE: 20170329
